FAERS Safety Report 24013379 (Version 1)
Quarter: 2024Q2

REPORT INFORMATION
  Report Type: Report from Study
  Country: US (occurrence: US)
  Receive Date: 20240626
  Receipt Date: 20240626
  Transmission Date: 20240716
  Serious: No
  Sender: FDA-Public Use
  Company Number: US-SANDOZ-SDZ2024US060242

PATIENT
  Sex: Male

DRUGS (2)
  1. OMNITROPE [Suspect]
     Active Substance: SOMATROPIN
     Indication: Product used for unknown indication
     Dosage: 5.8 MG, QD, FORMULATION: VIAL
     Route: 030
     Dates: start: 20240223
  2. OMNITROPE [Suspect]
     Active Substance: SOMATROPIN
     Indication: Product used for unknown indication
     Dosage: 5.8 MG, QD, FORMULATION: VIAL
     Route: 030
     Dates: start: 20240223

REACTIONS (3)
  - Drug ineffective [Unknown]
  - Device leakage [Unknown]
  - Product use issue [Unknown]
